FAERS Safety Report 13309681 (Version 1)
Quarter: 2017Q1

REPORT INFORMATION
  Report Type: Spontaneous
  Country: BR (occurrence: BR)
  Receive Date: 20170309
  Receipt Date: 20170309
  Transmission Date: 20170428
  Serious: Yes (Other)
  Sender: FDA-Public Use
  Company Number: BR-PFIZER INC-2017099025

PATIENT
  Age: 75 Year
  Sex: Female

DRUGS (3)
  1. INDAPAMIDE. [Concomitant]
     Active Substance: INDAPAMIDE
     Indication: BLOOD PRESSURE MEASUREMENT
     Dosage: 5 MG, DAILY
     Route: 048
     Dates: start: 201612
  2. FRONTAL [Suspect]
     Active Substance: ALPRAZOLAM
     Indication: ANXIETY
     Dosage: 0.5 MG, 2X/DAY
     Route: 048
     Dates: start: 201611
  3. DIOVAN [Concomitant]
     Active Substance: VALSARTAN
     Indication: DIABETES MELLITUS
     Dosage: 160 MG, DAILY
     Route: 048
     Dates: start: 2009

REACTIONS (3)
  - Joint injury [Unknown]
  - Fall [Unknown]
  - Insomnia [Unknown]

NARRATIVE: CASE EVENT DATE: 20170126
